FAERS Safety Report 6767920-4 (Version None)
Quarter: 2010Q2

REPORT INFORMATION
  Report Type: 
  Country: None (occurrence: None)
  Receive Date: 20100610
  Receipt Date: 20100607
  Transmission Date: 20101027
  Serious: Yes (Other)
  Sender: FDA-Public Use
  Company Number: 1000013871

PATIENT
  Age: 36 Year
  Sex: Male

DRUGS (2)
  1. ESCITALOPRAM OXALATE [Suspect]
     Indication: ANXIETY DISORDER
     Dosage: (20 MG),ORAL
     Route: 048
  2. ESCITALOPRAM OXALATE [Suspect]
     Indication: ANXIETY DISORDER
     Dosage: (60 MG),ORAL
     Route: 048

REACTIONS (9)
  - CHEST PAIN [None]
  - DIPLOPIA [None]
  - DYSPNOEA [None]
  - FEAR [None]
  - FRONTAL LOBE EPILEPSY [None]
  - LOSS OF LIBIDO [None]
  - MUSCLE SPASMS [None]
  - PARAESTHESIA [None]
  - RASH [None]
